FAERS Safety Report 5237761-8 (Version None)
Quarter: 2007Q1

REPORT INFORMATION
  Report Type: 
  Country: None (occurrence: None)
  Receive Date: 20070214
  Receipt Date: 20070209
  Transmission Date: 20070707
  Serious: Yes (Hospitalization)
  Sender: FDA-Public Use
  Company Number: JP-JPN-A200700088

PATIENT
  Age: 91 Year
  Sex: Female

DRUGS (8)
  1. PAXIL [Suspect]
     Indication: DEPRESSION
     Dosage: 10MG PER DAY
     Route: 048
     Dates: start: 20061121, end: 20070112
  2. MAGNESIUM OXIDE [Concomitant]
     Indication: CONSTIPATION
     Dosage: 1G PER DAY
     Route: 048
  3. PELEX [Concomitant]
     Indication: NASOPHARYNGITIS
     Dosage: 3G PER DAY
     Route: 048
     Dates: start: 20061205, end: 20070123
  4. DIAZEPAM [Concomitant]
     Indication: DEPRESSION
     Route: 048
     Dates: start: 20061205
  5. PURSENNID [Concomitant]
     Indication: CONSTIPATION
     Dosage: 24MG PER DAY
     Route: 048
  6. CLARITHROMYCIN [Concomitant]
     Indication: UPPER RESPIRATORY TRACT INFLAMMATION
     Dosage: 400MG PER DAY
     Route: 048
     Dates: start: 20061218
  7. CEFTRIAXONE [Concomitant]
     Route: 042
     Dates: start: 20070123
  8. UNKNOWN DRUG [Concomitant]
     Route: 065
     Dates: start: 20061107

REACTIONS (14)
  - ASTHENIA [None]
  - BALANCE DISORDER [None]
  - DECREASED APPETITE [None]
  - HYPOKINESIA [None]
  - HYPONATRAEMIA [None]
  - ILL-DEFINED DISORDER [None]
  - JAUNDICE [None]
  - MOVEMENT DISORDER [None]
  - MUSCULAR WEAKNESS [None]
  - NASOPHARYNGITIS [None]
  - PYREXIA [None]
  - RESTLESSNESS [None]
  - SOLILOQUY [None]
  - SOMNOLENCE [None]
